FAERS Safety Report 4448022-9 (Version None)
Quarter: 2004Q3

REPORT INFORMATION
  Report Type: 
  Country: None (occurrence: None)
  Receive Date: 20040813
  Receipt Date: 20040622
  Transmission Date: 20050211
  Serious: No
  Sender: FDA-Public Use
  Company Number: S04-USA-03775-01

PATIENT
  Age: 83 Year
  Sex: Male

DRUGS (6)
  1. NAMENDA [Suspect]
     Indication: AMNESIA
     Dosage: 20 MG QD PO
     Route: 048
     Dates: start: 20040201
  2. EXELON [Concomitant]
  3. EFFEXOR [Concomitant]
  4. EYE DROPS (NOS) [Concomitant]
  5. THYROID MEDICATION (NOS) [Concomitant]
  6. CHEMOTHERAPY [Concomitant]

REACTIONS (2)
  - CONFUSIONAL STATE [None]
  - SOMNOLENCE [None]
